FAERS Safety Report 9933036 (Version 1)
Quarter: 2014Q1

REPORT INFORMATION
  Report Type: Spontaneous
  Country: US (occurrence: US)
  Receive Date: 20140228
  Receipt Date: 20140228
  Transmission Date: 20141002
  Serious: No
  Sender: FDA-Public Use
  Company Number: US-GLAXOSMITHKLINE-A1045249A

PATIENT
  Sex: Female

DRUGS (5)
  1. LAMICTAL [Suspect]
     Indication: MOOD SWINGS
     Dosage: 100MG FOUR TIMES PER DAY
     Route: 048
     Dates: start: 201302, end: 201310
  2. PRISTIQ [Concomitant]
  3. KLONOPIN [Concomitant]
  4. ZYRTEC [Concomitant]
  5. NASONEX [Concomitant]

REACTIONS (3)
  - Liver disorder [Not Recovered/Not Resolved]
  - Liver function test abnormal [Unknown]
  - Ultrasound liver abnormal [Unknown]
